FAERS Safety Report 7688112-0 (Version None)
Quarter: 2011Q3

REPORT INFORMATION
  Report Type: 
  Country: None (occurrence: None)
  Receive Date: 20110817
  Receipt Date: 20110811
  Transmission Date: 20111222
  Serious: Yes (Hospitalization)
  Sender: FDA-Public Use
  Company Number: GB-SANOFI-AVENTIS-2011SA049795

PATIENT
  Age: 73 Year
  Sex: Male
  Weight: 83.7 kg

DRUGS (3)
  1. PREDNISONE [Suspect]
     Indication: PROSTATE CANCER
     Route: 048
     Dates: start: 20110407
  2. CABAZITAXEL [Suspect]
     Route: 042
  3. CABAZITAXEL [Suspect]
     Indication: PROSTATE CANCER
     Route: 042
     Dates: start: 20110407, end: 20110407

REACTIONS (1)
  - HAEMOPTYSIS [None]
